FAERS Safety Report 8372697-5 (Version None)
Quarter: 2012Q2

REPORT INFORMATION
  Report Type: 
  Country: None (occurrence: None)
  Receive Date: 20120521
  Receipt Date: 20120508
  Transmission Date: 20120825
  Serious: Yes (Hospitalization)
  Sender: FDA-Public Use
  Company Number: PL-VERTEX PHARMACEUTICALS INC.-000000000000000680

PATIENT
  Sex: Female
  Weight: 59.5 kg

DRUGS (4)
  1. TELAPREVIR [Concomitant]
  2. TELAPREVIR [Suspect]
     Indication: HEPATITIS C
     Dosage: DOSAGE FORM: TABLET
     Route: 048
     Dates: start: 20120301
  3. REBETOL [Concomitant]
     Indication: HEPATITIS C
     Dosage: DOSAGE FORM: UNSPECIFIED
     Route: 048
     Dates: start: 20120301
  4. PEG-INTRON [Concomitant]
     Indication: HEPATITIS C
     Dosage: DOSAGE FORM: UNSPECIFIED
     Route: 058
     Dates: start: 20120301

REACTIONS (4)
  - PANCREATIC DISORDER [None]
  - BLOOD URIC ACID INCREASED [None]
  - ABDOMINAL PAIN UPPER [None]
  - ANAEMIA [None]
